FAERS Safety Report 23317762 (Version 1)
Quarter: 2023Q4

REPORT INFORMATION
  Report Type: Spontaneous
  Country: US (occurrence: None)
  Receive Date: 20231219
  Receipt Date: 20231219
  Transmission Date: 20240109
  Serious: No
  Sender: FDA-Public Use
  Company Number: US-ROCHE-3278403

PATIENT

DRUGS (1)
  1. GAZYVA [Suspect]
     Active Substance: OBINUTUZUMAB
     Indication: Product used for unknown indication
     Dosage: 100MG IN FIRST INFUSION, 900MG FOR SECOND INFUSION ;ONGOING: NO
     Route: 042
     Dates: start: 20230130, end: 20230130

REACTIONS (1)
  - Infusion related reaction [Unknown]
